FAERS Safety Report 14200588 (Version 1)
Quarter: 2017Q4

REPORT INFORMATION
  Report Type: Spontaneous
  Country: JP (occurrence: JP)
  Receive Date: 20171117
  Receipt Date: 20171117
  Transmission Date: 20180321
  Serious: Yes (Death, Other)
  Sender: FDA-Public Use
  Company Number: JP-BAYER-2017-214562

PATIENT

DRUGS (2)
  1. STIVARGA [Suspect]
     Active Substance: REGORAFENIB
     Indication: HEPATOCELLULAR CARCINOMA
     Dosage: UNK
     Route: 048
     Dates: start: 201707
  2. NEXAVAR [Suspect]
     Active Substance: SORAFENIB
     Route: 048

REACTIONS (3)
  - Disseminated intravascular coagulation [Fatal]
  - Sarcopenia [Fatal]
  - Sepsis [None]
